FAERS Safety Report 19712405 (Version 1)
Quarter: 2021Q3

REPORT INFORMATION
  Report Type: Report from Study
  Country: US (occurrence: US)
  Receive Date: 20210816
  Receipt Date: 20210816
  Transmission Date: 20211014
  Serious: No
  Sender: FDA-Public Use
  Company Number: US-SUNOVION-2018SUN005354

PATIENT
  Sex: Female

DRUGS (1)
  1. BROVANA [Suspect]
     Active Substance: ARFORMOTEROL TARTRATE
     Dosage: 2 ML

REACTIONS (6)
  - Respiration abnormal [Unknown]
  - Pruritus [Unknown]
  - Dyspnoea [Unknown]
  - Rhinorrhoea [None]
  - Gait disturbance [Unknown]
  - Dizziness [Unknown]
